FAERS Safety Report 17553190 (Version 1)
Quarter: 2020Q1

REPORT INFORMATION
  Report Type: Spontaneous
  Country: US (occurrence: US)
  Receive Date: 20200317
  Receipt Date: 20200317
  Transmission Date: 20200409
  Serious: No
  Sender: FDA-Public Use
  Company Number: US-HISAMITSU-2019-US-012070

PATIENT
  Sex: Male

DRUGS (1)
  1. SALONPAS PAIN RELIEF [Suspect]
     Active Substance: MENTHOL\METHYL SALICYLATE
     Indication: MUSCLE INJURY
     Dosage: TWO PATCHES TO THE HAMSTRING AREA
     Route: 061

REACTIONS (2)
  - Application site pain [Unknown]
  - Application site alopecia [Unknown]
